FAERS Safety Report 7671168-9 (Version None)
Quarter: 2011Q3

REPORT INFORMATION
  Report Type: 
  Country: None (occurrence: None)
  Receive Date: 20110808
  Receipt Date: 20110808
  Transmission Date: 20111222
  Serious: Yes (Other)
  Sender: FDA-Public Use
  Company Number: None

PATIENT
  Sex: Female
  Weight: 57.7 kg

DRUGS (2)
  1. DABIGATRAN 150MG BOEHRINGER INGELHEIM PHARMACEUTICALS, INC. [Suspect]
     Indication: ATRIAL FIBRILLATION
     Dosage: 150MG DAILY ORAL
     Route: 048
     Dates: start: 20110126
  2. DABIGATRAN 150MG BOEHRINGER INGELHEIM PHARMACEUTICALS, INC. [Suspect]
     Indication: ATRIAL FIBRILLATION
     Dosage: 150MG DAILY ORAL
     Route: 048
     Dates: start: 20110506

REACTIONS (3)
  - OEDEMA PERIPHERAL [None]
  - DYSPNOEA [None]
  - FATIGUE [None]
